FAERS Safety Report 9846377 (Version 1)
Quarter: 2013Q4

REPORT INFORMATION
  Report Type: Spontaneous
  Country: US (occurrence: None)
  Receive Date: 20131224
  Receipt Date: 20131224
  Transmission Date: 20140711
  Serious: Yes (Other)
  Sender: FDA-Public Use
  Company Number: PHEH2013US023239

PATIENT
  Age: 62 Year
  Sex: Female
  Weight: 95.7 kg

DRUGS (14)
  1. GILENYA (FINGOLIMOD) CAPSULE, 0.5MG [Suspect]
     Indication: RELAPSING-REMITTING MULTIPLE SCLEROSIS
     Route: 048
     Dates: start: 20131021
  2. LISINOPRIL (LISINOPRIL) [Concomitant]
  3. TEGRETOL (CARBAMAZEPINE) UNKNOWN [Concomitant]
  4. TOPROL (METOPROLOL SUCCINATE) [Concomitant]
  5. CARDIZEM (DILTIAZEM HYDROCHLORIDE) [Concomitant]
  6. LEVOTHYROXIN (LEVOTHYROXINE SODIUM) [Concomitant]
  7. BIO MAGNESIUM/MAGNESIUM (MAGNESIUM) [Concomitant]
  8. BACLOFEN (BACLOFEN) [Concomitant]
  9. NEURONTIN (GABAPENTIN) [Concomitant]
  10. CRESTOR (ROSUVASTATIN CALCIUM) [Concomitant]
  11. VOLTAREN ^CIBA-GEIGY^ (DICLOFENAC SODIUM) [Concomitant]
  12. PROZAC (FLUOXETINE HYDROCHLORIDE) [Concomitant]
  13. VIT D (ERGOCALCIFEROL) [Concomitant]
  14. VIT B12 [Concomitant]

REACTIONS (1)
  - Blood pressure increased [None]
